FAERS Safety Report 4452087-8 (Version None)
Quarter: 2004Q3

REPORT INFORMATION
  Report Type: 
  Country: None (occurrence: None)
  Receive Date: 20040913
  Receipt Date: 20040721
  Transmission Date: 20050211
  Serious: No
  Sender: FDA-Public Use
  Company Number: 2004-BP-05957BP(0)

PATIENT
  Sex: Female

DRUGS (11)
  1. SPIRIVA [Suspect]
     Dosage: (18 MCG), IH
  2. ZOSYN [Concomitant]
  3. ALBUTEROL [Concomitant]
  4. ACETYLSALICYLIC ACID SRT [Concomitant]
  5. PLAVIX [Concomitant]
  6. LASIX [Concomitant]
  7. ENDUR [Concomitant]
  8. LOVENOX [Concomitant]
  9. PRAVACHOL [Concomitant]
  10. GUAIFENESIN (GUAIFENESIN) [Concomitant]
  11. REGLAN [Concomitant]

REACTIONS (2)
  - DIARRHOEA [None]
  - OFF LABEL USE [None]
